FAERS Safety Report 19445314 (Version 1)
Quarter: 2021Q2

REPORT INFORMATION
  Report Type: Spontaneous
  Country: US (occurrence: US)
  Receive Date: 20210621
  Receipt Date: 20210621
  Transmission Date: 20210717
  Serious: No
  Sender: FDA-Public Use
  Company Number: US-SA-2021SA201135

PATIENT
  Sex: Male

DRUGS (5)
  1. AUBAGIO [Suspect]
     Active Substance: TERIFLUNOMIDE
     Indication: MULTIPLE SCLEROSIS
     Dosage: 14 MG, QD
     Route: 048
     Dates: start: 2016
  2. ALOE VERA [Concomitant]
     Active Substance: ALOE VERA LEAF
  3. ADVIL [Concomitant]
     Active Substance: IBUPROFEN
     Dosage: 100 MG
  4. LYRICA [Concomitant]
     Active Substance: PREGABALIN
     Dosage: 14 MG
  5. ZANTAC 75 [Concomitant]
     Active Substance: RANITIDINE HYDROCHLORIDE

REACTIONS (1)
  - Hypoaesthesia [Not Recovered/Not Resolved]
